FAERS Safety Report 5683562-6 (Version None)
Quarter: 2008Q1

REPORT INFORMATION
  Report Type: 
  Country: None (occurrence: None)
  Receive Date: 20080326
  Receipt Date: 20070619
  Transmission Date: 20080703
  Serious: Yes (Hospitalization)
  Sender: FDA-Public Use
  Company Number: 6034080

PATIENT
  Age: 68 Year
  Sex: Male

DRUGS (1)
  1. METFORMIN HCL [Suspect]
     Indication: TYPE 2 DIABETES MELLITUS
     Dosage: (1 GM) ORAL
     Route: 048

REACTIONS (12)
  - ATRIAL FIBRILLATION [None]
  - BLOOD PRESSURE DECREASED [None]
  - COLITIS [None]
  - DEHYDRATION [None]
  - FALL [None]
  - INCOHERENT [None]
  - LACTIC ACIDOSIS [None]
  - MALAISE [None]
  - PERIPHERAL COLDNESS [None]
  - RENAL FAILURE ACUTE [None]
  - SOMNOLENCE [None]
  - WEIGHT DECREASED [None]
